FAERS Safety Report 12341555 (Version 1)
Quarter: 2016Q2

REPORT INFORMATION
  Report Type: Spontaneous
  Country: US (occurrence: None)
  Receive Date: 20160505
  Receipt Date: 20160505
  Transmission Date: 20160815
  Serious: Yes (Hospitalization)
  Sender: FDA-Public Use
  Company Number: None

PATIENT
  Age: 82 Year
  Sex: Female

DRUGS (14)
  1. SINGULAIR [Concomitant]
     Active Substance: MONTELUKAST SODIUM
  2. IBRANCE [Suspect]
     Active Substance: PALBOCICLIB
     Indication: NEOPLASM MALIGNANT
     Dosage: 125MG-21 DAYS OF 28 DAY CYCLE QD PO
     Route: 048
     Dates: start: 20150723
  3. APAP/CODEINE [Concomitant]
     Active Substance: ACETAMINOPHEN\CODEINE PHOSPHATE
  4. LORATADINE. [Concomitant]
     Active Substance: LORATADINE
  5. LETROZOLE. [Concomitant]
     Active Substance: LETROZOLE
  6. LASIX [Concomitant]
     Active Substance: FUROSEMIDE
  7. METOPROLOL TARTRATE. [Concomitant]
     Active Substance: METOPROLOL TARTRATE
  8. ALBUTEROL. [Concomitant]
     Active Substance: ALBUTEROL
  9. CALCIUM [Concomitant]
     Active Substance: CALCIUM
  10. METHOTREXATE [Concomitant]
     Active Substance: METHOTREXATE
  11. IPRATROPIUM/SOL ALBUTER [Concomitant]
  12. COUMADIN [Concomitant]
     Active Substance: WARFARIN SODIUM
  13. LOVASTATIN. [Concomitant]
     Active Substance: LOVASTATIN
  14. ADVAIR DISKU [Concomitant]

REACTIONS (2)
  - Blood sodium decreased [None]
  - Vomiting [None]

NARRATIVE: CASE EVENT DATE: 201604
